FAERS Safety Report 9551348 (Version 2)
Quarter: 2013Q3

REPORT INFORMATION
  Report Type: Spontaneous
  Country: JP (occurrence: JP)
  Receive Date: 20130925
  Receipt Date: 20130925
  Transmission Date: 20140515
  Serious: Yes (Hospitalization)
  Sender: FDA-Public Use
  Company Number: JP-BRISTOL-MYERS SQUIBB COMPANY-19004472

PATIENT
  Age: 83 Year
  Sex: Female

DRUGS (1)
  1. ORENCIA [Suspect]
     Dosage: INTRAVENOUS INFUSION?LAST DOSE OF ORENCIA IS ON 15MAY2013.
     Route: 042

REACTIONS (1)
  - Pneumonia aspiration [Not Recovered/Not Resolved]
